FAERS Safety Report 8905418 (Version 1)
Quarter: 2012Q4

REPORT INFORMATION
  Report Type: 
  Country: US (occurrence: US)
  Receive Date: 20121109
  Receipt Date: 20121109
  Transmission Date: 20130627
  Serious: Yes (Hospitalization)
  Sender: FDA-Public Use
  Company Number: US-B.I. PHARMACEUTICALS,INC./RIDGEFIELD-2012-BP-27343BP

PATIENT
  Age: 75 None
  Sex: Female
  Weight: 71 kg

DRUGS (5)
  1. SPIRIVA [Suspect]
     Indication: CHRONIC OBSTRUCTIVE PULMONARY DISEASE
     Dosage: 18 mcg
     Route: 055
     Dates: start: 2005
  2. ALBUTEROL SULFATE [Concomitant]
  3. VITAMIN B [Concomitant]
  4. CALCIUM [Concomitant]
     Indication: OSTEOPOROSIS
  5. FORADIL [Concomitant]

REACTIONS (12)
  - Chronic obstructive pulmonary disease [Recovered/Resolved]
  - Myocardial infarction [Recovered/Resolved]
  - Hypoacusis [Not Recovered/Not Resolved]
  - Insomnia [Recovered/Resolved]
  - Aphagia [Recovered/Resolved]
  - Euphoric mood [Recovered/Resolved]
  - Panic attack [Recovered/Resolved]
  - Urinary tract infection [Not Recovered/Not Resolved]
  - Central nervous system infection [Not Recovered/Not Resolved]
  - Visual impairment [Not Recovered/Not Resolved]
  - Sensory loss [Not Recovered/Not Resolved]
  - Gastrooesophageal reflux disease [Unknown]
